FAERS Safety Report 10461810 (Version 3)
Quarter: 2014Q4

REPORT INFORMATION
  Report Type: Spontaneous
  Country: US (occurrence: None)
  Receive Date: 20140916
  Receipt Date: 20141029
  Transmission Date: 20150528
  Serious: Yes (Other)
  Sender: FDA-Public Use
  Company Number: 2014VID00041

PATIENT
  Age: 17 Year
  Sex: Male

DRUGS (14)
  1. ACTIMMUNE [Suspect]
     Active Substance: INTERFERON GAMMA-1B
     Dates: start: 1997
  2. CLONIDINE. [Concomitant]
     Active Substance: CLONIDINE
  3. ITRACONAZOLE. [Concomitant]
     Active Substance: ITRACONAZOLE
  4. VYVANSE [Concomitant]
     Active Substance: LISDEXAMFETAMINE DIMESYLATE
  5. SEPTRA [Concomitant]
     Active Substance: SULFAMETHOXAZOLE\TRIMETHOPRIM
  6. CYMBALTA [Concomitant]
     Active Substance: DULOXETINE HYDROCHLORIDE
  7. IBUPROFEN. [Concomitant]
     Active Substance: IBUPROFEN
  8. PANTOPRAZOLE [Concomitant]
     Active Substance: PANTOPRAZOLE SODIUM
  9. SINGULAIR [Concomitant]
     Active Substance: MONTELUKAST SODIUM
  10. ALBUTEROL INHALER [Concomitant]
     Active Substance: ALBUTEROL
  11. QVAR [Concomitant]
     Active Substance: BECLOMETHASONE DIPROPIONATE
  12. FLUTICASONE NASAL SPRAY [Concomitant]
     Active Substance: FLUTICASONE\FLUTICASONE PROPIONATE
  13. LORATADINE. [Concomitant]
     Active Substance: LORATADINE
  14. GEODON [Concomitant]
     Active Substance: ZIPRASIDONE HYDROCHLORIDE\ZIPRASIDONE MESYLATE

REACTIONS (17)
  - Wound [None]
  - Depression [None]
  - Incorrect dose administered [None]
  - Headache [None]
  - Treatment noncompliance [None]
  - Suicidal ideation [None]
  - Musculoskeletal chest pain [None]
  - Staphylococcal infection [None]
  - Anxiety [None]
  - Feeling of body temperature change [None]
  - Therapy cessation [None]
  - Rectal haemorrhage [None]
  - Social problem [None]
  - Influenza like illness [None]
  - Bone pain [None]
  - Hyperhidrosis [None]
  - Fatigue [None]

NARRATIVE: CASE EVENT DATE: 2009
